FAERS Safety Report 12532200 (Version 2)
Quarter: 2016Q3

REPORT INFORMATION
  Report Type: Spontaneous
  Country: KR (occurrence: KR)
  Receive Date: 20160706
  Receipt Date: 20160811
  Transmission Date: 20161109
  Serious: Yes (Other)
  Sender: FDA-Public Use
  Company Number: KR-JNJFOC-20160627626

PATIENT

DRUGS (5)
  1. INFLIXIMAB, RECOMBINANT [Suspect]
     Active Substance: INFLIXIMAB
     Indication: CROHN^S DISEASE
     Dosage: DOSE INCREASED IN 86 PATIENTS
     Route: 042
  2. INFLIXIMAB, RECOMBINANT [Suspect]
     Active Substance: INFLIXIMAB
     Indication: CROHN^S DISEASE
     Dosage: RECEIVED 3 DOSES OF IFX OVER 6 WEEKS AS INDUCTION THERAPY (AT 0, 2 AND 6 WKS)
     Route: 042
  3. 6-MP [Concomitant]
     Active Substance: MERCAPTOPURINE
     Route: 065
  4. METHOTREXATE. [Concomitant]
     Active Substance: METHOTREXATE
     Route: 065
  5. AZATHIOPRINE. [Concomitant]
     Active Substance: AZATHIOPRINE
     Route: 065

REACTIONS (4)
  - Therapeutic response decreased [Unknown]
  - Infusion related reaction [Unknown]
  - Colorectal cancer [Unknown]
  - Tuberculosis [Unknown]
